FAERS Safety Report 7521229-X (Version None)
Quarter: 2011Q2

REPORT INFORMATION
  Report Type: 
  Country: None (occurrence: None)
  Receive Date: 20110603
  Receipt Date: 20101212
  Transmission Date: 20111010
  Serious: Yes (Hospitalization, Other)
  Sender: FDA-Public Use
  Company Number: US-BAYER-2010-004176

PATIENT
  Sex: Female

DRUGS (4)
  1. BUSPAR [Concomitant]
     Indication: DEPRESSION
     Dosage: UNK
     Dates: start: 20101101
  2. PLAVIX [Concomitant]
     Indication: MYOCARDIAL INFARCTION
     Dosage: UNK
     Dates: start: 20090101
  3. BETASERON [Suspect]
     Indication: RELAPSING-REMITTING MULTIPLE SCLEROSIS
     Dosage: UNKNOWN
     Route: 058
     Dates: start: 20020301, end: 20081101
  4. BETASERON [Suspect]
     Dosage: 8 MIUQOD
     Route: 058
     Dates: start: 20081201

REACTIONS (4)
  - DEPRESSION [None]
  - MUSCULAR WEAKNESS [None]
  - NAUSEA [None]
  - MYOCARDIAL INFARCTION [None]
